FAERS Safety Report 6381872-0 (Version None)
Quarter: 2009Q3

REPORT INFORMATION
  Report Type: 
  Country: None (occurrence: None)
  Receive Date: 20090930
  Receipt Date: 20090922
  Transmission Date: 20100115
  Serious: Yes (Other)
  Sender: FDA-Public Use
  Company Number: HR-JNJFOC-20090907437

PATIENT
  Sex: Female

DRUGS (7)
  1. RISPOLEPT CONSTA [Suspect]
     Indication: DELUSION
     Route: 065
  2. CIPRALEX [Concomitant]
     Route: 065
  3. LAMICTAL [Concomitant]
     Route: 065
  4. DIAZEPAM [Concomitant]
     Route: 065
  5. ATROVENT [Concomitant]
     Route: 065
  6. IRUZID [Concomitant]
     Route: 065
  7. AMLODIPINE [Concomitant]
     Route: 065

REACTIONS (4)
  - AGGRESSION [None]
  - AGITATION [None]
  - HYPOMANIA [None]
  - RESTLESSNESS [None]
